FAERS Safety Report 19006200 (Version 2)
Quarter: 2021Q2

REPORT INFORMATION
  Report Type: Report from Study
  Country: US (occurrence: US)
  Receive Date: 20210315
  Receipt Date: 20210607
  Transmission Date: 20210717
  Serious: No
  Sender: FDA-Public Use
  Company Number: US-ACADIA PHARMACEUTICALS INC.-ACA-2021-PIM-000682

PATIENT
  Sex: Female

DRUGS (7)
  1. NUPLAZID [Suspect]
     Active Substance: PIMAVANSERIN TARTRATE
     Indication: PARKINSON^S DISEASE
     Dosage: 34 MILLIGRAM, QD
     Route: 048
     Dates: start: 20200127
  2. NUPLAZID [Suspect]
     Active Substance: PIMAVANSERIN TARTRATE
     Dosage: 34 MILLIGRAM, QD
     Route: 048
     Dates: start: 20200228
  3. MUCINEX [Suspect]
     Active Substance: GUAIFENESIN
     Indication: RHINORRHOEA
  4. MUCINEX [Suspect]
     Active Substance: GUAIFENESIN
     Indication: COUGH
  5. ROBITUSSIN [DEXTROMETHORPHAN HYDROBROMIDE] [Suspect]
     Active Substance: DEXTROMETHORPHAN HYDROBROMIDE
     Indication: COUGH
  6. SINEMET [Concomitant]
     Active Substance: CARBIDOPA\LEVODOPA
     Dosage: UNK
     Dates: start: 20180103
  7. ROBITUSSIN [DEXTROMETHORPHAN HYDROBROMIDE] [Suspect]
     Active Substance: DEXTROMETHORPHAN HYDROBROMIDE
     Indication: RHINORRHOEA

REACTIONS (4)
  - Nightmare [Recovered/Resolved]
  - Hallucination [Recovered/Resolved]
  - Rhinorrhoea [Unknown]
  - Cough [Unknown]
